FAERS Safety Report 15806180 (Version 1)
Quarter: 2019Q1

REPORT INFORMATION
  Report Type: Spontaneous
  Country: US (occurrence: US)
  Receive Date: 20190110
  Receipt Date: 20190110
  Transmission Date: 20190417
  Serious: Yes (Other)
  Sender: FDA-Public Use
  Company Number: US-BAYER-2019-000267

PATIENT
  Age: 78 Year
  Sex: Female

DRUGS (2)
  1. MIRENA [Suspect]
     Active Substance: LEVONORGESTREL
     Indication: UTERINE CANCER
  2. MIRENA [Suspect]
     Active Substance: LEVONORGESTREL
     Indication: UTERINE CANCER
     Dosage: 20 MCG/24HR, CONT
     Route: 015
     Dates: start: 201801

REACTIONS (7)
  - Fatigue [Not Recovered/Not Resolved]
  - Device dislocation [Not Recovered/Not Resolved]
  - Procedural pain [None]
  - Stress [Not Recovered/Not Resolved]
  - Product use in unapproved indication [None]
  - Overweight [Not Recovered/Not Resolved]
  - Genital haemorrhage [Not Recovered/Not Resolved]

NARRATIVE: CASE EVENT DATE: 2018
